FAERS Safety Report 9401569 (Version 1)
Quarter: 2013Q3

REPORT INFORMATION
  Report Type: Report from Study
  Country: AU (occurrence: AU)
  Receive Date: 20130716
  Receipt Date: 20130716
  Transmission Date: 20140515
  Serious: Yes (Other)
  Sender: FDA-Public Use
  Company Number: AU-ALEXION PHARMACEUTICALS INC.-A201301624

PATIENT
  Age: 36 Year
  Sex: Female

DRUGS (2)
  1. ECULIZUMAB [Suspect]
     Indication: HAEMOLYTIC URAEMIC SYNDROME
     Dosage: 600 MG, QW
     Route: 042
     Dates: start: 20111104, end: 20111125
  2. ECULIZUMAB [Suspect]
     Dosage: 1200 MG, Q2W
     Route: 042
     Dates: start: 20111202

REACTIONS (1)
  - Pulmonary embolism [Unknown]
